FAERS Safety Report 4897379-3 (Version None)
Quarter: 2006Q1

REPORT INFORMATION
  Report Type: 
  Country: None (occurrence: None)
  Receive Date: 20060130
  Receipt Date: 20060130
  Transmission Date: 20060701
  Serious: Yes (Other)
  Sender: FDA-Public Use
  Company Number: None

PATIENT
  Age: 86 Year
  Sex: Male
  Weight: 87.5 kg

DRUGS (4)
  1. FELODIPINE [Suspect]
  2. HCTZ 25/TRIAMTERENE [Concomitant]
  3. LISINOPRIL [Concomitant]
  4. TERAZOSIN HCL [Concomitant]

REACTIONS (1)
  - OEDEMA PERIPHERAL [None]
